FAERS Safety Report 21816470 (Version 1)
Quarter: 2023Q1

REPORT INFORMATION
  Report Type: Spontaneous
  Country: US (occurrence: None)
  Receive Date: 20230104
  Receipt Date: 20230104
  Transmission Date: 20230417
  Serious: No
  Sender: FDA-Public Use
  Company Number: 2022A406931

PATIENT
  Sex: Female
  Weight: 96.2 kg

DRUGS (2)
  1. FARXIGA [Suspect]
     Active Substance: DAPAGLIFLOZIN PROPANEDIOL
     Indication: Type 2 diabetes mellitus
     Route: 048
     Dates: start: 2021, end: 202210
  2. GLIPIZIDE METFORMIN [Concomitant]
     Indication: Type 2 diabetes mellitus

REACTIONS (1)
  - Glycosylated haemoglobin increased [Unknown]
